FAERS Safety Report 16145703 (Version 1)
Quarter: 2019Q2

REPORT INFORMATION
  Report Type: Spontaneous
  Country: ES (occurrence: ES)
  Receive Date: 20190402
  Receipt Date: 20190402
  Transmission Date: 20190711
  Serious: Yes (Hospitalization, Other)
  Sender: FDA-Public Use
  Company Number: ES-ACTELION-A-CH2019-188152

PATIENT
  Age: 49 Year
  Sex: Male

DRUGS (3)
  1. CLOPIDOGREL [Concomitant]
     Active Substance: CLOPIDOGREL BISULFATE
  2. BOSENTAN. [Suspect]
     Active Substance: BOSENTAN
     Indication: CONGENITAL TRICUSPID VALVE ATRESIA
     Route: 048
  3. ALLOPURINOL. [Concomitant]
     Active Substance: ALLOPURINOL

REACTIONS (3)
  - Phlebotomy [Unknown]
  - Pigment nephropathy [Unknown]
  - Proteinuria [Unknown]
